FAERS Safety Report 17391971 (Version 1)
Quarter: 2020Q1

REPORT INFORMATION
  Report Type: Spontaneous
  Country: US (occurrence: US)
  Receive Date: 20200207
  Receipt Date: 20200207
  Transmission Date: 20200409
  Serious: No
  Sender: FDA-Public Use
  Company Number: US-ASTRAZENECA-2020SE05758

PATIENT
  Age: 834 Month
  Sex: Male
  Weight: 93.7 kg

DRUGS (3)
  1. FASENRA [Suspect]
     Active Substance: BENRALIZUMAB
     Indication: SEVERE ASTHMA WITH FUNGAL SENSITISATION
     Dosage: INCREASED DOSE
     Route: 058
  2. ANORO [Concomitant]
     Active Substance: UMECLIDINIUM BROMIDE\VILANTEROL TRIFENATATE
     Indication: ASTHMA
     Route: 065
  3. FASENRA [Suspect]
     Active Substance: BENRALIZUMAB
     Indication: SEVERE ASTHMA WITH FUNGAL SENSITISATION
     Dosage: 30 MG, EVERY 6 WEEKS
     Route: 058
     Dates: start: 20190827

REACTIONS (1)
  - Asthma [Recovered/Resolved]

NARRATIVE: CASE EVENT DATE: 201912
